FAERS Safety Report 8336033-2 (Version None)
Quarter: 2012Q2

REPORT INFORMATION
  Report Type: 
  Country: None (occurrence: None)
  Receive Date: 20120501
  Receipt Date: 20120501
  Transmission Date: 20120825
  Serious: Yes (Hospitalization)
  Sender: FDA-Public Use
  Company Number: None

PATIENT
  Age: 74 Year
  Sex: Female
  Weight: 59.18 kg

DRUGS (15)
  1. ASPIRIN [Suspect]
     Indication: CORONARY ARTERY DISEASE
     Dosage: 81MG DAILY PO CHRONIC
     Route: 048
  2. ALDACTONE [Concomitant]
  3. LISINOPRIL [Concomitant]
  4. KEPPRA [Concomitant]
  5. COUMADIN [Suspect]
     Indication: ATRIAL FIBRILLATION
     Dosage: 4MG DAILY PO CHRONIC
     Route: 048
  6. MIRALAX [Concomitant]
  7. LEXAPRO [Concomitant]
  8. REMERON [Concomitant]
  9. COREG [Concomitant]
  10. RESTASIS [Concomitant]
  11. LASIX [Concomitant]
  12. CARDIZEM CD [Concomitant]
  13. DIGOXIN [Concomitant]
  14. COLACE [Concomitant]
  15. METALAZONE [Concomitant]

REACTIONS (5)
  - FAILURE TO THRIVE [None]
  - INTERNATIONAL NORMALISED RATIO INCREASED [None]
  - DRUG INTERACTION [None]
  - EPISTAXIS [None]
  - RENAL FAILURE [None]
